FAERS Safety Report 19150250 (Version 1)
Quarter: 2021Q2

REPORT INFORMATION
  Report Type: Spontaneous
  Country: IT (occurrence: IT)
  Receive Date: 20210418
  Receipt Date: 20210418
  Transmission Date: 20210717
  Serious: Yes (Other)
  Sender: FDA-Public Use
  Company Number: IT-JNJFOC-20210423249

PATIENT
  Age: 63 Year
  Sex: Male
  Weight: 54 kg

DRUGS (7)
  1. SIMVASTATIN. [Suspect]
     Active Substance: SIMVASTATIN
     Indication: PRODUCT USED FOR UNKNOWN INDICATION
     Dosage: 28 TABLETS
     Route: 065
  2. PLAVIX [Concomitant]
     Active Substance: CLOPIDOGREL BISULFATE
     Route: 065
  3. CARDIOASPIRINA [Concomitant]
     Active Substance: ASPIRIN
     Route: 065
  4. LANSOPRAZOLE. [Concomitant]
     Active Substance: LANSOPRAZOLE
     Route: 065
  5. SYMTUZA [Suspect]
     Active Substance: COBICISTAT\DARUNAVIR\EMTRICITABINE\TENOFOVIR ALAFENAMIDE
     Indication: PRODUCT USED FOR UNKNOWN INDICATION
     Dosage: 800 MG/150 MG/200 MG/10 MG
     Route: 048
  6. BISOPROLOL [Concomitant]
     Active Substance: BISOPROLOL
     Dosage: 28 COATED TABLETS
     Route: 065
  7. EZETIMIBE ACCORD [Concomitant]
     Dosage: 30 TABLETS
     Route: 065

REACTIONS (2)
  - Rhabdomyolysis [Unknown]
  - Contraindicated product administered [Unknown]
